FAERS Safety Report 6876764-4 (Version None)
Quarter: 2010Q3

REPORT INFORMATION
  Report Type: 
  Country: None (occurrence: None)
  Receive Date: 20100727
  Receipt Date: 20100716
  Transmission Date: 20110219
  Serious: Yes (Other)
  Sender: FDA-Public Use
  Company Number: JP-ROCHE-710775

PATIENT
  Sex: Female

DRUGS (2)
  1. HERCEPTIN [Suspect]
     Indication: BREAST CANCER
     Route: 041
     Dates: start: 20080925, end: 20080925
  2. HERCEPTIN [Suspect]
     Route: 041
     Dates: start: 20081009, end: 20100323

REACTIONS (2)
  - ABORTION SPONTANEOUS [None]
  - PREGNANCY [None]
